FAERS Safety Report 18708565 (Version 3)
Quarter: 2024Q4

REPORT INFORMATION
  Report Type: Spontaneous
  Country: CA (occurrence: CA)
  Receive Date: 20210106
  Receipt Date: 20241223
  Transmission Date: 20250115
  Serious: Yes (Hospitalization, Other)
  Sender: BAUSCH AND LOMB
  Company Number: CA-BAUSCH-BL-2020-039154

PATIENT
  Age: 78 Year
  Sex: Female

DRUGS (39)
  1. ALBUTEROL [Suspect]
     Active Substance: ALBUTEROL
     Indication: Product used for unknown indication
     Route: 065
  2. TRAMADOL HYDROCHLORIDE [Suspect]
     Active Substance: TRAMADOL HYDROCHLORIDE
     Indication: Pain
     Route: 065
  3. ACEBUTOLOL HYDROCHLORIDE [Suspect]
     Active Substance: ACEBUTOLOL HYDROCHLORIDE
     Indication: Hypertension
     Route: 065
  4. ASPIRIN [Suspect]
     Active Substance: ASPIRIN
     Indication: Cerebrovascular accident
     Route: 065
  5. ASPIRIN [Suspect]
     Active Substance: ASPIRIN
     Indication: Anticoagulant therapy
     Route: 065
  6. ALISKIREN HEMIFUMARATE [Suspect]
     Active Substance: ALISKIREN HEMIFUMARATE
     Indication: Hypertension
     Route: 065
  7. ALLOPURINOL [Suspect]
     Active Substance: ALLOPURINOL
     Indication: Prophylaxis
     Route: 065
  8. ALLOPURINOL [Suspect]
     Active Substance: ALLOPURINOL
     Indication: Gout
     Route: 065
  9. ALLOPURINOL [Suspect]
     Active Substance: ALLOPURINOL
     Route: 065
  10. AMLODIPINE [Suspect]
     Active Substance: AMLODIPINE BESYLATE
     Indication: Hypertension
     Route: 065
  11. BETAMETHASONE [Suspect]
     Active Substance: BETAMETHASONE
     Indication: Psoriasis
     Route: 065
  12. BETAMETHASONE VALERATE [Suspect]
     Active Substance: BETAMETHASONE VALERATE
     Indication: Psoriasis
     Route: 065
  13. CALCIUM CARBONATE [Suspect]
     Active Substance: CALCIUM CARBONATE
     Indication: Osteoporosis
     Route: 065
  14. CYANOCOBALAMIN [Suspect]
     Active Substance: CYANOCOBALAMIN
     Indication: Product used for unknown indication
     Route: 065
  15. FLUTICASONE [Suspect]
     Active Substance: FLUTICASONE
     Indication: Wheezing
     Route: 065
  16. FLUTICASONE [Suspect]
     Active Substance: FLUTICASONE
     Indication: Cough
  17. FUROSEMIDE [Suspect]
     Active Substance: FUROSEMIDE
     Indication: Oedema peripheral
     Route: 065
  18. GLICLAZIDE [Suspect]
     Active Substance: GLICLAZIDE
     Indication: Diabetes mellitus
     Route: 065
  19. HYDRALAZINE [Suspect]
     Active Substance: HYDRALAZINE HYDROCHLORIDE
     Indication: Hypertension
     Route: 065
  20. JANUVIA [Suspect]
     Active Substance: SITAGLIPTIN PHOSPHATE
     Indication: Diabetes mellitus
     Route: 065
  21. LABETALOL [Suspect]
     Active Substance: LABETALOL
     Indication: Hypertension
     Route: 065
  22. LABETALOL [Suspect]
     Active Substance: LABETALOL
     Route: 065
  23. LEVOTHYROXINE [Suspect]
     Active Substance: LEVOTHYROXINE
     Indication: Hypothyroidism
     Route: 065
  24. PANTOPRAZOLE [Suspect]
     Active Substance: PANTOPRAZOLE
     Indication: Product used for unknown indication
     Route: 065
  25. PRAMIPEXOLE [Suspect]
     Active Substance: PRAMIPEXOLE\PRAMIPEXOLE DIHYDROCHLORIDE
     Indication: Restless legs syndrome
     Route: 065
  26. RANITIDINE [Suspect]
     Active Substance: RANITIDINE
     Indication: Dyspepsia
     Route: 065
  27. RISEDRONATE SODIUM [Suspect]
     Active Substance: RISEDRONATE SODIUM
     Indication: Osteoporosis
     Route: 065
  28. THEO-DUR [Suspect]
     Active Substance: THEOPHYLLINE ANHYDROUS
     Indication: Hypertension
     Dosage: EXTENDED RELEASE
     Route: 065
  29. VALSARTAN [Suspect]
     Active Substance: VALSARTAN
     Indication: Hypertension
     Route: 065
  30. ZOCOR [Suspect]
     Active Substance: SIMVASTATIN
     Indication: Cerebrovascular accident
     Route: 065
  31. BETAMETHASONE DIPROPIONATE\CALCIPOTRIENE MONOHYDRATE [Suspect]
     Active Substance: BETAMETHASONE DIPROPIONATE\CALCIPOTRIENE MONOHYDRATE
     Indication: Psoriasis
     Route: 065
  32. APIXABAN [Suspect]
     Active Substance: APIXABAN
     Indication: Anticoagulant therapy
     Route: 048
  33. CALCIUM GLUCONATE [Suspect]
     Active Substance: CALCIUM GLUCONATE
     Indication: Osteoporosis
     Route: 065
  34. CLOPIDOGREL BISULFATE [Suspect]
     Active Substance: CLOPIDOGREL BISULFATE
     Indication: Anticoagulant therapy
     Route: 065
  35. METHOCARBAMOL;IBUPROFEN [Concomitant]
     Indication: Product use in unapproved indication
  36. ACETAMINOPHEN [Concomitant]
     Active Substance: ACETAMINOPHEN
     Indication: Product used for unknown indication
  37. ERGOCALCIFEROL [Concomitant]
     Active Substance: ERGOCALCIFEROL
     Indication: Product used for unknown indication
  38. HERBALS\PLANTAGO OVATA LEAF [Concomitant]
     Active Substance: HERBALS\PLANTAGO OVATA LEAF
     Indication: Product used for unknown indication
     Route: 048
  39. CALCIPOTRIENE [Concomitant]
     Active Substance: CALCIPOTRIENE
     Indication: Psoriasis

REACTIONS (16)
  - Amnesia [Unknown]
  - Cognitive disorder [Unknown]
  - Contusion [Unknown]
  - Abdominal discomfort [Unknown]
  - Exercise tolerance decreased [Unknown]
  - Mobility decreased [Unknown]
  - Multiple drug therapy [Unknown]
  - Depressed mood [Unknown]
  - Oedema peripheral [Unknown]
  - Diabetes mellitus inadequate control [Unknown]
  - Blood pressure inadequately controlled [Unknown]
  - Hypertension [Unknown]
  - Drug ineffective [Unknown]
  - Medication error [Unknown]
  - Treatment noncompliance [Unknown]
  - Product use issue [Unknown]
